FAERS Safety Report 5614891-X (Version None)
Quarter: 2008Q1

REPORT INFORMATION
  Report Type: 
  Country: None (occurrence: None)
  Receive Date: 20080206
  Receipt Date: 20080201
  Transmission Date: 20080703
  Serious: Yes (Other)
  Sender: FDA-Public Use
  Company Number: GB-RB-009189-08

PATIENT
  Age: 20 Year
  Sex: Male

DRUGS (2)
  1. SUBOXONE [Suspect]
     Dosage: 4 MG IN THE MORNING, 2 MG AT NIGHT.
     Route: 060
     Dates: start: 20071201
  2. BENZODIAZEPINES [Suspect]
     Indication: DRUG USE FOR UNKNOWN INDICATION
     Dosage: DOSAGE UNKNOWN
     Route: 065

REACTIONS (2)
  - SUBSTANCE ABUSE [None]
  - TREMOR [None]
